FAERS Safety Report 7422150-8 (Version None)
Quarter: 2011Q2

REPORT INFORMATION
  Report Type: 
  Country: None (occurrence: None)
  Receive Date: 20110418
  Receipt Date: 20110112
  Transmission Date: 20111010
  Serious: Yes (Hospitalization, Other)
  Sender: FDA-Public Use
  Company Number: US-BAYER-201035973NA

PATIENT
  Age: 25 Year
  Sex: Female

DRUGS (18)
  1. EFFEXOR [Concomitant]
  2. LORTAB [Concomitant]
  3. VENLAFAXINE HCL [Concomitant]
  4. YAZ [Suspect]
     Indication: PRODUCT USED FOR UNKNOWN INDICATION
     Dosage: UNK
     Route: 048
     Dates: start: 20061019, end: 20070418
  5. SEROQUEL [Concomitant]
  6. TRIAMTERENE AND HYDROCHLOROTHIAZIDE [Concomitant]
  7. DILAUDID [Concomitant]
     Indication: PAIN
  8. VALIUM [Concomitant]
  9. DIAZEPAM [Concomitant]
  10. PHENERGAN HCL [Concomitant]
     Indication: NAUSEA
  11. GLUCOPHAGE [Concomitant]
  12. GABAPENTIN [Concomitant]
  13. TEMAZEPAM [Concomitant]
  14. IBUPROFEN [Concomitant]
  15. NEXIUM [Concomitant]
  16. YASMIN [Suspect]
     Indication: PRODUCT USED FOR UNKNOWN INDICATION
     Dosage: UNK
     Route: 048
     Dates: start: 20061019, end: 20070418
  17. LAMICTAL [Concomitant]
  18. FLEXERIL [Concomitant]

REACTIONS (8)
  - DIZZINESS [None]
  - DEEP VEIN THROMBOSIS [None]
  - NAUSEA [None]
  - URINE OUTPUT DECREASED [None]
  - CHROMATURIA [None]
  - PULMONARY EMBOLISM [None]
  - BIPOLAR DISORDER [None]
  - DEHYDRATION [None]
